FAERS Safety Report 4495133-8 (Version None)
Quarter: 2004Q4

REPORT INFORMATION
  Report Type: 
  Country: None (occurrence: None)
  Receive Date: 20041103
  Receipt Date: 20041022
  Transmission Date: 20050328
  Serious: Yes (Other)
  Sender: FDA-Public Use
  Company Number: WAES 0410HKG00026

PATIENT
  Age: 40 Year
  Sex: Male

DRUGS (2)
  1. CRIXIVAN [Suspect]
     Indication: HIV INFECTION
  2. LAMIVUDINE (+) ZIDOVUDINE [Concomitant]

REACTIONS (2)
  - HYPERTHYROIDISM [None]
  - WEIGHT DECREASED [None]
